FAERS Safety Report 12224817 (Version 6)
Quarter: 2016Q2

REPORT INFORMATION
  Report Type: Spontaneous
  Country: HU (occurrence: HU)
  Receive Date: 20160331
  Receipt Date: 20160426
  Transmission Date: 20160815
  Serious: Yes (Death, Hospitalization)
  Sender: FDA-Public Use
  Company Number: HU-ROCHE-1734457

PATIENT
  Age: 66 Year
  Sex: Male
  Weight: 91 kg

DRUGS (8)
  1. SOLU-MEDROL [Concomitant]
     Active Substance: METHYLPREDNISOLONE SODIUM SUCCINATE
     Indication: ANTIEMETIC SUPPORTIVE CARE
     Route: 041
     Dates: start: 20160217
  2. XELODA [Suspect]
     Active Substance: CAPECITABINE
     Indication: GASTRIC CANCER
     Route: 048
     Dates: start: 20160217, end: 20160227
  3. CALCIMUSC [Concomitant]
     Active Substance: CALCIUM GLUCONATE
     Indication: ELECTROLYTE IMBALANCE
     Dosage: 1DF = 1 AMPOULE = 500MG CALCIUM-GLUCONATE^, 1X2 AMPOULES
     Route: 041
     Dates: start: 20160217
  4. MAGNESIUM SULFATE. [Concomitant]
     Active Substance: MAGNESIUM SULFATE
     Indication: ELECTROLYTE IMBALANCE
     Route: 041
     Dates: start: 20160217
  5. EMETRON [Concomitant]
     Indication: ANTIEMETIC SUPPORTIVE CARE
     Route: 040
     Dates: start: 20160217
  6. PLATIDIAM [Suspect]
     Active Substance: CISPLATIN
     Indication: GASTRIC CANCER
     Route: 041
     Dates: start: 20160217, end: 20160217
  7. SODIUM CHLORIDE. [Concomitant]
     Active Substance: SODIUM CHLORIDE
     Dosage: 0.9% NACL
     Route: 041
  8. QUAMATEL [Concomitant]
     Active Substance: FAMOTIDINE
     Indication: PROPHYLAXIS AGAINST GASTROINTESTINAL ULCER
     Route: 041
     Dates: start: 20160217

REACTIONS (13)
  - Anaemia [Fatal]
  - Febrile neutropenia [Fatal]
  - Right ventricular failure [Fatal]
  - Nausea [Unknown]
  - Vomiting [Unknown]
  - Respiratory failure [Fatal]
  - Circulatory collapse [Fatal]
  - Colitis [Unknown]
  - Diarrhoea [Unknown]
  - Thrombocytopenia [Fatal]
  - Gastrointestinal inflammation [Unknown]
  - Stomatitis [Unknown]
  - Chronic kidney disease [Fatal]

NARRATIVE: CASE EVENT DATE: 20160219
